FAERS Safety Report 4407523-X (Version None)
Quarter: 2004Q3

REPORT INFORMATION
  Report Type: 
  Country: None (occurrence: None)
  Receive Date: 20040721
  Receipt Date: 20040706
  Transmission Date: 20050211
  Serious: Yes (Hospitalization, Other)
  Sender: FDA-Public Use
  Company Number: 2004221652GB

PATIENT
  Age: 72 Year
  Sex: Female

DRUGS (12)
  1. ARTHROTEC [Suspect]
     Indication: ARTHRITIS
     Dosage: ORAL
     Route: 048
     Dates: end: 20040620
  2. PROCHLORPERAZINE [Suspect]
     Indication: NAUSEA
     Dosage: PRN
     Dates: end: 20040620
  3. ALENDRONATE SODIUM [Concomitant]
  4. ADCAL (CARBAZOCHROME) [Concomitant]
  5. MORPHINE SULFATE [Concomitant]
  6. SEVREDOL [Concomitant]
  7. LACTULOSE [Concomitant]
  8. CO-PROXAMOL) (DEXTROPROPOXYPHENE HYDROCHLORIDE) [Concomitant]
  9. ASPIRIN [Concomitant]
  10. RANITIDINE [Concomitant]
  11. DIPYRIDAMOLE [Concomitant]
  12. LANSOPRAZOLE [Concomitant]

REACTIONS (3)
  - BLOOD POTASSIUM DECREASED [None]
  - INAPPROPRIATE ANTIDIURETIC HORMONE SECRETION [None]
  - URINARY RETENTION [None]
